FAERS Safety Report 7579815-7 (Version None)
Quarter: 2011Q2

REPORT INFORMATION
  Report Type: 
  Country: None (occurrence: None)
  Receive Date: 20110629
  Receipt Date: 20100816
  Transmission Date: 20111010
  Serious: No
  Sender: FDA-Public Use
  Company Number: A0876672A

PATIENT
  Sex: Female

DRUGS (1)
  1. ZYBAN [Suspect]

REACTIONS (1)
  - HYPERSENSITIVITY [None]
